FAERS Safety Report 24196129 (Version 1)
Quarter: 2024Q3

REPORT INFORMATION
  Report Type: Spontaneous
  Country: US (occurrence: US)
  Receive Date: 20240809
  Receipt Date: 20240809
  Transmission Date: 20241017
  Serious: No
  Sender: MILLICENT HOLDINGS
  Company Number: US-Millicent Holdings Ltd.-MILL20241075

PATIENT
  Age: 62 Year
  Sex: Female

DRUGS (1)
  1. INTRAROSA [Suspect]
     Active Substance: PRASTERONE
     Indication: Product used for unknown indication
     Dosage: 1
     Route: 067
     Dates: start: 202407

REACTIONS (2)
  - Wrong technique in product usage process [Unknown]
  - Product quality issue [None]

NARRATIVE: CASE EVENT DATE: 20240701
